FAERS Safety Report 4861378-8 (Version None)
Quarter: 2005Q4

REPORT INFORMATION
  Report Type: 
  Country: None (occurrence: None)
  Receive Date: 20051220
  Receipt Date: 20051209
  Transmission Date: 20060501
  Serious: Yes (Other)
  Sender: FDA-Public Use
  Company Number: US-ROCHE-428404

PATIENT
  Age: 37 Year
  Sex: Male

DRUGS (3)
  1. CLONAZEPAM [Suspect]
     Route: 065
  2. CLONAZEPAM [Suspect]
     Route: 065
  3. CLONAZEPAM [Suspect]
     Route: 065

REACTIONS (1)
  - MANIA [None]
